FAERS Safety Report 5942410-7 (Version None)
Quarter: 2008Q4

REPORT INFORMATION
  Report Type: 
  Country: None (occurrence: None)
  Receive Date: 20081105
  Receipt Date: 20081024
  Transmission Date: 20090506
  Serious: Yes (Hospitalization)
  Sender: FDA-Public Use
  Company Number: AU-PFIZER INC-2008092060

PATIENT
  Sex: Female

DRUGS (3)
  1. SERTRALINE [Suspect]
     Dosage: DAILY DOSE:50MG
     Route: 048
  2. MOBIC [Suspect]
     Dosage: DAILY DOSE:15MG
     Route: 048
  3. NEXIUM [Concomitant]
     Dosage: DAILY DOSE:40MG
     Route: 048

REACTIONS (1)
  - GASTRIC ULCER HAEMORRHAGE [None]
